FAERS Safety Report 13107502 (Version 2)
Quarter: 2018Q2

REPORT INFORMATION
  Report Type: Spontaneous
  Country: US (occurrence: US)
  Receive Date: 20170112
  Receipt Date: 20180521
  Transmission Date: 20180711
  Serious: No
  Sender: FDA-Public Use
  Company Number: US-TEVA-726174ACC

PATIENT
  Age: 53 Year
  Sex: Female
  Weight: 74.91 kg

DRUGS (1)
  1. ETHYNODIOL DIACETATE AND ETHINYL ESTRADIOL [Suspect]
     Active Substance: ETHINYL ESTRADIOL\ETHYNODIOL DIACETATE
     Indication: HORMONE REPLACEMENT THERAPY
     Dosage: 1 MG/0.035 MG
     Dates: start: 20161001

REACTIONS (3)
  - Nausea [Unknown]
  - Abdominal discomfort [Unknown]
  - Abdominal distension [Unknown]

NARRATIVE: CASE EVENT DATE: 201610
